FAERS Safety Report 5472036-3 (Version None)
Quarter: 2007Q3

REPORT INFORMATION
  Report Type: 
  Country: None (occurrence: None)
  Receive Date: 20070928
  Receipt Date: 20070918
  Transmission Date: 20080115
  Serious: Yes (Hospitalization, Other)
  Sender: FDA-Public Use
  Company Number: DE-PFIZER INC-2007078040

PATIENT
  Sex: Female

DRUGS (1)
  1. ZYVOX [Suspect]
     Indication: NOCARDIOSIS

REACTIONS (2)
  - APALLIC SYNDROME [None]
  - GASTROINTESTINAL DISORDER [None]
